FAERS Safety Report 6637255-9 (Version None)
Quarter: 2010Q1

REPORT INFORMATION
  Report Type: 
  Country: None (occurrence: None)
  Receive Date: 20100316
  Receipt Date: 20100223
  Transmission Date: 20100710
  Serious: No
  Sender: FDA-Public Use
  Company Number: US-ABBOTT-10P-163-0629142-00

PATIENT
  Sex: Female

DRUGS (1)
  1. TRILIPIX [Suspect]
     Indication: BLOOD CHOLESTEROL INCREASED
     Dates: start: 20100120

REACTIONS (2)
  - POLYMENORRHOEA [None]
  - VAGINAL HAEMORRHAGE [None]
